FAERS Safety Report 9834314 (Version 4)
Quarter: 2014Q1

REPORT INFORMATION
  Report Type: Report from Study
  Country: JP (occurrence: JP)
  Receive Date: 20140122
  Receipt Date: 20140207
  Transmission Date: 20141002
  Serious: Yes (Other)
  Sender: FDA-Public Use
  Company Number: JP-JNJFOC-20131013354

PATIENT
  Age: 78 Year
  Sex: Female
  Weight: 49 kg

DRUGS (29)
  1. TRAMCET [Suspect]
     Indication: PAIN
     Dosage: 1 DOSE X 1 PER DAY
     Route: 048
     Dates: start: 20121115, end: 20121212
  2. TRAMCET [Suspect]
     Indication: PAIN
     Dosage: 1 DOSE X 2 PER DAY
     Route: 048
     Dates: start: 20130612
  3. TRAMCET [Suspect]
     Indication: PAIN
     Dosage: 1 DOSE X 3 PER DAY
     Route: 048
     Dates: start: 20130110, end: 20130611
  4. TRAMCET [Suspect]
     Indication: PAIN
     Dosage: 1 DOSE X 2 PER DAY
     Route: 048
     Dates: start: 20121213, end: 20130109
  5. TRAMCET [Suspect]
     Indication: PAIN
     Dosage: 1 DOSE X 3 PER DAY
     Route: 048
     Dates: start: 20130110, end: 20130611
  6. TRAMCET [Suspect]
     Indication: PAIN
     Dosage: 1 DOSE X 2 PER DAY
     Route: 048
     Dates: start: 20130612
  7. TRAMCET [Suspect]
     Indication: PAIN
     Dosage: 1 DOSE X 1 PER DAY
     Route: 048
     Dates: start: 20121115, end: 20121212
  8. TRAMCET [Suspect]
     Indication: PAIN
     Dosage: 1 DOSE X 2 PER DAY
     Route: 048
     Dates: start: 20121213, end: 20130109
  9. TRAMCET [Suspect]
     Indication: PAIN
     Dosage: 1 DOSE X 2 PER DAY
     Route: 048
     Dates: start: 20121213, end: 20130109
  10. TRAMCET [Suspect]
     Indication: PAIN
     Dosage: 1 DOSE X 1 PER DAY
     Route: 048
     Dates: start: 20121115, end: 20121212
  11. TRAMCET [Suspect]
     Indication: PAIN
     Dosage: 1 DOSE X 2 PER DAY
     Route: 048
     Dates: start: 20130612
  12. TRAMCET [Suspect]
     Indication: PAIN
     Dosage: 1 DOSE X 3 PER DAY
     Route: 048
     Dates: start: 20130110, end: 20130611
  13. FOSAMAC [Concomitant]
     Indication: OSTEOPOROSIS
     Dosage: 1 PER 1 WEEK
     Route: 048
     Dates: end: 20130326
  14. DEPAS [Concomitant]
     Indication: PAIN
     Dosage: 1 PER 1 DAY
     Route: 048
  15. METHYCOBAL [Concomitant]
     Indication: NEUROPATHY PERIPHERAL
     Dosage: 1 PER 1 DAY
     Route: 048
     Dates: end: 20130416
  16. UNISIA [Concomitant]
     Indication: HYPERTENSION
     Dosage: 1 PER 1 DAY
     Route: 048
  17. LIMAPROST ALFADEX [Concomitant]
     Indication: PAIN
     Dosage: 1 PER 1 DAY
     Route: 048
  18. TAKEPRON [Concomitant]
     Indication: GASTROOESOPHAGEAL REFLUX DISEASE
     Dosage: 1 PER 1 DAY
     Route: 048
  19. BEZATOL SR [Concomitant]
     Indication: HYPERLIPIDAEMIA
     Dosage: 1 PER 1 DAY
     Route: 048
  20. MAGMITT [Concomitant]
     Indication: CONSTIPATION
     Dosage: 1 PER 1 DAY
     Route: 048
     Dates: start: 20130612
  21. MAGMITT [Concomitant]
     Indication: CONSTIPATION
     Dosage: 1 PER 1 DAY
     Route: 048
     Dates: start: 20130123, end: 20130611
  22. RECALBON [Concomitant]
     Indication: OSTEOPOROSIS
     Dosage: 1 PER 4 WEEK
     Route: 048
     Dates: start: 20130327
  23. EDIROL [Concomitant]
     Indication: OSTEOPOROSIS
     Dosage: 1 PER 1 DAY
     Route: 048
     Dates: start: 20130812
  24. LOXONIN [Concomitant]
     Indication: BACK PAIN
     Dosage: 1 PER 1 DAY
     Route: 048
     Dates: start: 20131108, end: 20131126
  25. CAPISTEN [Concomitant]
     Indication: SPINAL COMPRESSION FRACTURE
     Route: 030
     Dates: start: 20131105, end: 20131105
  26. CAPISTEN [Concomitant]
     Indication: SPINAL COMPRESSION FRACTURE
     Route: 030
     Dates: start: 20130423, end: 20130423
  27. CAPISTEN [Concomitant]
     Indication: PAIN
     Route: 030
     Dates: start: 20131105, end: 20131105
  28. CAPISTEN [Concomitant]
     Indication: PAIN
     Route: 030
     Dates: start: 20130423, end: 20130423
  29. SHAKUYAKU-K ANZO-TO [Concomitant]
     Indication: PAIN
     Dosage: 1 PER 1 DAY
     Route: 048

REACTIONS (3)
  - Spinal compression fracture [Recovering/Resolving]
  - Back pain [Recovering/Resolving]
  - Constipation [Recovering/Resolving]
